FAERS Safety Report 9819275 (Version 4)
Quarter: 2014Q1

REPORT INFORMATION
  Report Type: Spontaneous
  Country: DK (occurrence: JP)
  Receive Date: 20140115
  Receipt Date: 20140226
  Transmission Date: 20141002
  Serious: Yes (Life-Threatening, Other)
  Sender: FDA-Public Use
  Company Number: JP-FRI-1000052779

PATIENT
  Age: 14 Year
  Sex: Female
  Weight: 57 kg

DRUGS (8)
  1. LEXAPRO [Suspect]
     Indication: DEPRESSION
     Dosage: 2.5 MG
     Route: 048
     Dates: start: 20131114, end: 20131126
  2. LEXAPRO [Suspect]
     Dosage: 5 MG
     Route: 048
     Dates: start: 20131127, end: 20131217
  3. GASMOTIN [Concomitant]
     Indication: NAUSEA
     Dosage: 15 MG
     Route: 048
     Dates: start: 20131102, end: 20131217
  4. TSUMURA SHOKENCHUTO EXTRACT GRANULES FOR ETHICAL USE [Concomitant]
     Indication: NEUROSIS
     Dosage: 5G
     Route: 048
     Dates: start: 20131025, end: 20131217
  5. TSUMURA SHOKENCHUTO EXTRACT GRANULES FOR ETHICAL USE [Concomitant]
     Dosage: 2.5 G
     Route: 048
     Dates: start: 20131218, end: 20140117
  6. TSUMURA SHOKENCHUTO EXTRACT GRANULES FOR ETHICAL USE [Concomitant]
     Dosage: 10G
     Route: 048
     Dates: start: 20140117, end: 20140129
  7. TSUMURA SHOKENCHUTO EXTRACT GRANULES FOR ETHICAL USE [Concomitant]
     Dosage: 10G
     Route: 048
     Dates: start: 20140129
  8. LAMICTAL [Concomitant]
     Dosage: 2 MG
     Route: 048
     Dates: start: 20140129

REACTIONS (2)
  - Activation syndrome [Recovered/Resolved]
  - Off label use [Recovered/Resolved]
